FAERS Safety Report 12962436 (Version 2)
Quarter: 2017Q4

REPORT INFORMATION
  Report Type: Spontaneous
  Country: US (occurrence: US)
  Receive Date: 20161121
  Receipt Date: 20171109
  Transmission Date: 20180320
  Serious: No
  Sender: FDA-Public Use
  Company Number: US-ALLERGAN-1668553US

PATIENT
  Sex: Male

DRUGS (4)
  1. COMBIGAN [Suspect]
     Active Substance: BRIMONIDINE TARTRATE\TIMOLOL MALEATE
     Indication: PRODUCT USED FOR UNKNOWN INDICATION
     Dosage: UNK, BID
     Route: 047
     Dates: start: 201608, end: 201609
  2. LATANAPROST/TIMOLOL [Concomitant]
     Active Substance: LATANOPROST\TIMOLOL
     Indication: PRODUCT USED FOR UNKNOWN INDICATION
     Route: 047
  3. BABY ASPIRIN [Concomitant]
     Active Substance: ASPIRIN
     Indication: PRODUCT USED FOR UNKNOWN INDICATION
     Route: 048
  4. COMBIGAN [Suspect]
     Active Substance: BRIMONIDINE TARTRATE\TIMOLOL MALEATE
     Dosage: UNK, BID
     Route: 047
     Dates: start: 201608, end: 201609

REACTIONS (2)
  - Heart rate decreased [Recovered/Resolved]
  - Somnolence [Recovered/Resolved]
